FAERS Safety Report 6898499-4 (Version None)
Quarter: 2010Q3

REPORT INFORMATION
  Report Type: 
  Country: None (occurrence: None)
  Receive Date: 20100802
  Receipt Date: 20071019
  Transmission Date: 20110219
  Serious: Yes (Other)
  Sender: FDA-Public Use
  Company Number: US-PFIZER INC-2007089735

PATIENT
  Sex: Female
  Weight: 59.09 kg

DRUGS (3)
  1. LYRICA [Suspect]
     Indication: PAIN
     Dosage: EVERY DAY
     Dates: start: 20070901
  2. SOMA [Suspect]
  3. PERCOCET [Concomitant]
     Indication: BACK PAIN

REACTIONS (3)
  - AMENORRHOEA [None]
  - BACK PAIN [None]
  - WEIGHT INCREASED [None]
